FAERS Safety Report 7259539-6 (Version None)
Quarter: 2011Q1

REPORT INFORMATION
  Report Type: 
  Country: None (occurrence: None)
  Receive Date: 20110129
  Receipt Date: 20100302
  Transmission Date: 20110831
  Serious: No
  Sender: FDA-Public Use
  Company Number: US-PFIZER INC-2010007579

PATIENT
  Sex: Female
  Weight: 52.154 kg

DRUGS (3)
  1. RELPAX [Suspect]
     Indication: MIGRAINE
     Dosage: UNK
     Dates: start: 20090101
  2. THYROID TAB [Concomitant]
     Indication: THYROID CANCER
  3. SYNTHROID [Concomitant]
     Indication: THYROID CANCER
     Dosage: UNK

REACTIONS (1)
  - SPEECH DISORDER [None]
